FAERS Safety Report 23243438 (Version 1)
Quarter: 2023Q4

REPORT INFORMATION
  Report Type: Spontaneous
  Country: US (occurrence: US)
  Receive Date: 20231130
  Receipt Date: 20231130
  Transmission Date: 20240110
  Serious: Yes (Other)
  Sender: FDA-Public Use
  Company Number: US-STRIDES ARCOLAB LIMITED-2023SP014795

PATIENT
  Sex: Female

DRUGS (7)
  1. PREDNISOLONE [Suspect]
     Active Substance: PREDNISOLONE
     Indication: Dry eye
     Dosage: UNK, QID
     Route: 065
     Dates: start: 2021
  2. DOXYCYCLINE [Suspect]
     Active Substance: DOXYCYCLINE
     Indication: Dry eye
     Dosage: 50 MILLIGRAM PER DAY
     Route: 048
  3. LOTEPREDNOL [Suspect]
     Active Substance: LOTEPREDNOL
     Indication: Dry eye
     Dosage: UNK, QD
     Route: 065
     Dates: start: 2021
  4. ARTIFICIAL TEARS (POLYVINYL ALCOHOL) [Suspect]
     Active Substance: POLYVINYL ALCOHOL
     Indication: Dry eye
     Dosage: UNK
     Route: 065
  5. ESTROGENS [Concomitant]
     Active Substance: ESTROGENS
     Indication: Uterine leiomyoma
     Dosage: UNK (PATCH)
     Route: 065
  6. CYCLOSPORINE [Concomitant]
     Active Substance: CYCLOSPORINE
     Indication: Dry eye
     Dosage: UNK (DROPS)
     Route: 061
  7. PROGESTERONE [Concomitant]
     Active Substance: PROGESTERONE
     Indication: Uterine leiomyoma
     Dosage: UNK
     Route: 048

REACTIONS (4)
  - Drug ineffective [Unknown]
  - Disease progression [Unknown]
  - Gastrointestinal disorder [Unknown]
  - Off label use [Unknown]
